FAERS Safety Report 8249405-1 (Version None)
Quarter: 2012Q2

REPORT INFORMATION
  Report Type: 
  Country: None (occurrence: None)
  Receive Date: 20120402
  Receipt Date: 20120326
  Transmission Date: 20120825
  Serious: Yes (Hospitalization)
  Sender: FDA-Public Use
  Company Number: US-JNJFOC-20120111503

PATIENT
  Sex: Female
  Weight: 89.3 kg

DRUGS (13)
  1. LASIX [Concomitant]
     Route: 048
  2. LORAZEPAM [Concomitant]
  3. MULTI-VITAMINS [Concomitant]
  4. OXYCODONE HCL [Concomitant]
     Route: 048
  5. XARELTO [Suspect]
     Indication: THROMBOSIS PROPHYLAXIS
     Route: 048
     Dates: start: 20120117, end: 20120123
  6. VITAMIN D [Concomitant]
  7. FERROUS SULFATE TAB [Concomitant]
  8. LACTULOSE [Concomitant]
     Route: 048
  9. PROPRANOLOL [Concomitant]
     Route: 048
  10. REQUIP [Concomitant]
     Route: 048
  11. AMBIEN [Concomitant]
     Route: 048
  12. CALCIUM CITRATE AND VITAMIN D [Concomitant]
     Route: 048
  13. ALDACTONE [Concomitant]
     Route: 048

REACTIONS (3)
  - POST PROCEDURAL HAEMATOMA [None]
  - VAGINAL HAEMORRHAGE [None]
  - COAGULOPATHY [None]
